FAERS Safety Report 6648060-1 (Version None)
Quarter: 2010Q1

REPORT INFORMATION
  Report Type: 
  Country: None (occurrence: None)
  Receive Date: 20100324
  Receipt Date: 20100316
  Transmission Date: 20100710
  Serious: Yes (Other)
  Sender: FDA-Public Use
  Company Number: PHHY2010US16725

PATIENT
  Sex: Female

DRUGS (7)
  1. EXELON [Suspect]
     Dosage: 4.6 MG, QD
  2. CELEXA [Concomitant]
  3. PEPCID [Concomitant]
     Dosage: UNK
  4. SYNTHROID [Concomitant]
  5. CENTRUM SILVER [Concomitant]
  6. ADVIL LIQUI-GELS [Concomitant]
     Dosage: UNK
  7. UNKNOWN ALLERGY PILLS [Concomitant]

REACTIONS (4)
  - BACK PAIN [None]
  - DEPRESSION [None]
  - NERVOUSNESS [None]
  - SUICIDAL IDEATION [None]
